FAERS Safety Report 7914580-2 (Version None)
Quarter: 2011Q4

REPORT INFORMATION
  Report Type: 
  Country: None (occurrence: None)
  Receive Date: 20111115
  Receipt Date: 20111101
  Transmission Date: 20120403
  Serious: Yes (Other)
  Sender: FDA-Public Use
  Company Number: PHEH2011US05369

PATIENT
  Sex: Male

DRUGS (7)
  1. TOPAMAX [Concomitant]
  2. LAMICTAL [Concomitant]
  3. CLONIDINE [Concomitant]
  4. AFINITOR [Suspect]
     Indication: ASTROCYTOMA, LOW GRADE
     Dosage: 5 MG, UNK
     Dates: start: 20110611
  5. AFINITOR [Suspect]
     Dosage: 5 MG, MONDAY TO SATURDAY
     Route: 048
     Dates: start: 20110917
  6. AFINITOR [Suspect]
     Dosage: 5 MG, DAILY
     Dates: start: 20111025
  7. DEPAKOTE [Concomitant]

REACTIONS (5)
  - DRUG LEVEL BELOW THERAPEUTIC [None]
  - CONVULSION [None]
  - CONTUSION [None]
  - SCRATCH [None]
  - DIARRHOEA [None]
